FAERS Safety Report 6160937-2 (Version None)
Quarter: 2009Q2

REPORT INFORMATION
  Report Type: 
  Country: None (occurrence: None)
  Receive Date: 20090417
  Receipt Date: 20090417
  Transmission Date: 20091009
  Serious: Yes (Other)
  Sender: FDA-Public Use
  Company Number: None

PATIENT
  Sex: Female

DRUGS (2)
  1. TOPIRAMATE [Suspect]
     Indication: CONVULSION
     Dosage: 100MG ONCE BID PO
     Route: 048
     Dates: start: 20090410, end: 20090415
  2. TOPIRAMATE [Suspect]
     Indication: MIGRAINE
     Dosage: 100MG ONCE BID PO
     Route: 048
     Dates: start: 20090410, end: 20090415

REACTIONS (2)
  - CHEST DISCOMFORT [None]
  - DIZZINESS [None]
